FAERS Safety Report 22146550 (Version 4)
Quarter: 2023Q1

REPORT INFORMATION
  Report Type: Spontaneous
  Country: US (occurrence: US)
  Receive Date: 20230328
  Receipt Date: 20230331
  Transmission Date: 20230418
  Serious: No
  Sender: FDA-Public Use
  Company Number: US-002147023-NVSC2023US069199

PATIENT
  Sex: Female

DRUGS (1)
  1. PATANASE [Suspect]
     Active Substance: OLOPATADINE HYDROCHLORIDE
     Indication: Product used for unknown indication
     Dosage: 665 MCG
     Route: 065
     Dates: start: 202209

REACTIONS (3)
  - Hypersensitivity [Unknown]
  - Headache [Unknown]
  - Product availability issue [Unknown]
